FAERS Safety Report 9735450 (Version 1)
Quarter: 2013Q4

REPORT INFORMATION
  Report Type: Spontaneous
  Country: US (occurrence: US)
  Receive Date: 20131206
  Receipt Date: 20131206
  Transmission Date: 20140711
  Serious: No
  Sender: FDA-Public Use
  Company Number: US-GILEAD-2009-0022939

PATIENT
  Sex: Female

DRUGS (11)
  1. LETAIRIS [Suspect]
     Indication: PULMONARY ARTERIAL HYPERTENSION
     Route: 048
     Dates: start: 20090429
  2. EXFORGE [Concomitant]
  3. PLAVIX [Concomitant]
  4. CRESTOR [Concomitant]
  5. ECOTRIN [Concomitant]
  6. IPRATROPIUM/ALBUTEROL [Concomitant]
  7. ADVAIR [Concomitant]
  8. OXYGEN [Concomitant]
  9. METFORMIN HCL [Concomitant]
  10. IMIPRAMINE [Concomitant]
  11. NEXIUM [Concomitant]

REACTIONS (1)
  - Fatigue [Unknown]
